FAERS Safety Report 9506151 (Version 1)
Quarter: 2013Q1

REPORT INFORMATION
  Report Type: Spontaneous
  Country: US (occurrence: None)
  Receive Date: 20130305
  Receipt Date: 20130305
  Transmission Date: 20140127
  Serious: Yes (Other)
  Sender: FDA-Public Use
  Company Number: 163-21880-11111360

PATIENT
  Age: 85 Year
  Sex: Male
  Weight: 79.4 kg

DRUGS (1)
  1. REVLIMID [Suspect]
     Indication: PLASMA CELL MYELOMA
     Dosage: EVERY OTHER DAY FOR 21  DAYS
     Route: 048
     Dates: start: 20101201

REACTIONS (1)
  - Cataract [None]
